FAERS Safety Report 8840229 (Version 2)
Quarter: 2013Q1

REPORT INFORMATION
  Report Type: Report from Study
  Country: JP (occurrence: JP)
  Receive Date: 20121015
  Receipt Date: 20130130
  Transmission Date: 20140127
  Serious: No
  Sender: FDA-Public Use
  Company Number: JP-009507513-2012SP028018

PATIENT
  Age: 58 Year
  Sex: Female
  Weight: 63 kg

DRUGS (15)
  1. PEGINTERFERON ALFA-2B [Suspect]
     Indication: CHRONIC HEPATITIS C
     Dosage: 1.5 MICROGRAM PER KILOGRAM, QW
     Route: 058
     Dates: start: 20120313, end: 20120327
  2. PEGINTERFERON ALFA-2B [Suspect]
     Dosage: 1.125 MICROGRAM PER KILOGRAM, QW
     Route: 058
     Dates: start: 20120403, end: 20120410
  3. PEGINTERFERON ALFA-2B [Suspect]
     Dosage: 1.5 MICROGRAM PER KILOGRAM, QW
     Route: 058
     Dates: start: 20120417, end: 20120424
  4. PEGINTERFERON ALFA-2B [Suspect]
     Dosage: UNK
     Route: 058
     Dates: start: 20120501, end: 20120514
  5. PEGINTERFERON ALFA-2B [Suspect]
     Dosage: 1.5 MICROGRAM PER KILOGRAM, QW
     Route: 058
     Dates: start: 20120515, end: 20120528
  6. PEGINTERFERON ALFA-2B [Suspect]
     Dosage: UNK
     Route: 058
     Dates: start: 20120529
  7. PEGINTERFERON ALFA-2B [Suspect]
     Dosage: UNK
     Route: 058
     Dates: start: 20120529, end: 20120610
  8. PEGINTERFERON ALFA-2B [Suspect]
     Dosage: 1.5 MICROGRAM PER KILOGRAM, UNK
     Dates: start: 20120703
  9. REBETOL [Suspect]
     Indication: CHRONIC HEPATITIS C
     Dosage: 400 MG, QD
     Route: 048
     Dates: start: 20120313, end: 20120430
  10. REBETOL [Suspect]
     Dosage: 200 MG, QD
     Route: 048
     Dates: start: 20120501, end: 20120507
  11. REBETOL [Suspect]
     Dosage: 200 MG, QD
     Dates: start: 20120703, end: 20120827
  12. TELAVIC [Suspect]
     Indication: CHRONIC HEPATITIS C
     Dosage: 1500 MG, QD
     Route: 048
     Dates: start: 20120313, end: 20120604
  13. LORFENAMIN [Concomitant]
     Indication: PROPHYLAXIS
     Dosage: UNK, QD
     Route: 048
     Dates: start: 20120313
  14. REBAMIPIDE [Concomitant]
     Indication: PROPHYLAXIS
     Dosage: UNK, QD
     Route: 048
     Dates: start: 20120313
  15. ZYLORIC [Concomitant]
     Indication: HYPERURICAEMIA
     Dosage: UNK, QD
     Route: 048
     Dates: start: 20120403

REACTIONS (1)
  - Anaemia [Recovering/Resolving]
